FAERS Safety Report 5684986-3 (Version None)
Quarter: 2008Q1

REPORT INFORMATION
  Report Type: 
  Country: None (occurrence: None)
  Receive Date: 20080328
  Receipt Date: 20080310
  Transmission Date: 20080703
  Serious: Yes (Other)
  Sender: FDA-Public Use
  Company Number: US-JNJFOC-20080302803

PATIENT
  Sex: Female
  Weight: 61.69 kg

DRUGS (3)
  1. TOPAMAX [Suspect]
  2. TOPAMAX [Suspect]
     Indication: MIGRAINE PROPHYLAXIS
  3. ORTHO TRI-CYCLEN [Suspect]
     Indication: ENDOMETRIOSIS
     Route: 048

REACTIONS (4)
  - DYSPNOEA [None]
  - FATIGUE [None]
  - NAUSEA [None]
  - VAGINAL HAEMORRHAGE [None]
